FAERS Safety Report 8233270-2 (Version None)
Quarter: 2012Q1

REPORT INFORMATION
  Report Type: 
  Country: None (occurrence: None)
  Receive Date: 20120326
  Receipt Date: 20120316
  Transmission Date: 20120608
  Serious: Yes (Hospitalization, Other)
  Sender: FDA-Public Use
  Company Number: JP-VERTEX PHARMACEUTICALS INC.-AE-2012-004048

PATIENT
  Age: 60 Year
  Sex: Female

DRUGS (6)
  1. RIBAVIRIN [Concomitant]
     Route: 048
     Dates: start: 20120215, end: 20120307
  2. PEGINTERFERON ALFA-2A [Concomitant]
     Route: 051
     Dates: start: 20120229, end: 20120229
  3. PEGINTERFERON ALFA-2A [Concomitant]
     Indication: HEPATITIS C
     Route: 051
     Dates: start: 20120201, end: 20120222
  4. TELAVIC (TELAPREVIR) [Suspect]
     Indication: HEPATITIS C
     Route: 048
     Dates: start: 20120201, end: 20120228
  5. TELAVIC (TELAPREVIR) [Suspect]
     Route: 048
     Dates: start: 20120229, end: 20120307
  6. RIBAVIRIN [Concomitant]
     Indication: HEPATITIS C
     Route: 048
     Dates: start: 20120201, end: 20120214

REACTIONS (2)
  - ANAEMIA [None]
  - DECREASED APPETITE [None]
